FAERS Safety Report 6255764-1 (Version None)
Quarter: 2009Q3

REPORT INFORMATION
  Report Type: 
  Country: None (occurrence: None)
  Receive Date: 20090701
  Receipt Date: 20090623
  Transmission Date: 20100115
  Serious: Yes (Death)
  Sender: FDA-Public Use
  Company Number: 2009ES0020

PATIENT
  Sex: Female

DRUGS (1)
  1. ORFADIN [Suspect]
     Indication: TYROSINAEMIA
     Dosage: ORAL
     Route: 048
     Dates: start: 19961111

REACTIONS (2)
  - ACCIDENTAL DEATH [None]
  - MALAISE [None]
